FAERS Safety Report 18507661 (Version 8)
Quarter: 2022Q1

REPORT INFORMATION
  Report Type: Report from Study
  Country: US (occurrence: US)
  Receive Date: 20201116
  Receipt Date: 20220201
  Transmission Date: 20220423
  Serious: Yes (Death, Other)
  Sender: FDA-Public Use
  Company Number: US-TAKEDA-2020TUS046682

PATIENT
  Age: 79 Year
  Sex: Male
  Weight: 79 kg

DRUGS (32)
  1. HUMAN IMMUNOGLOBULIN G [Suspect]
     Active Substance: HUMAN IMMUNOGLOBULIN G
     Indication: Immunodeficiency common variable
     Dosage: 10 GRAM, 1/WEEK
     Route: 058
     Dates: start: 20201006
  2. HUMAN IMMUNOGLOBULIN G [Suspect]
     Active Substance: HUMAN IMMUNOGLOBULIN G
     Dosage: 8 GRAM, 1/WEEK
     Route: 058
     Dates: start: 20201006
  3. HUMAN IMMUNOGLOBULIN G [Suspect]
     Active Substance: HUMAN IMMUNOGLOBULIN G
     Dosage: 1 GRAM
     Route: 065
  4. ACETAMINOPHEN [Concomitant]
     Active Substance: ACETAMINOPHEN
  5. DIPHENHYDRAMINE [Concomitant]
     Active Substance: DIPHENHYDRAMINE
  6. EPINEPHRINE [Concomitant]
     Active Substance: EPINEPHRINE
  7. LIDOCAINE [Concomitant]
     Active Substance: LIDOCAINE
  8. ATENOLOL [Concomitant]
     Active Substance: ATENOLOL
  9. PRINIVIL [Concomitant]
     Active Substance: LISINOPRIL
  10. RESTASIS [Concomitant]
     Active Substance: CYCLOSPORINE
  11. LIPITOR [Concomitant]
     Active Substance: ATORVASTATIN CALCIUM
  12. LYRICA [Concomitant]
     Active Substance: PREGABALIN
  13. ALBUTEROL [Concomitant]
     Active Substance: ALBUTEROL
  14. FLONASE [Concomitant]
     Active Substance: FLUTICASONE PROPIONATE
  15. VALIUM [Concomitant]
     Active Substance: DIAZEPAM
  16. SYMBICORT [Concomitant]
     Active Substance: BUDESONIDE\FORMOTEROL FUMARATE DIHYDRATE
  17. NEXIUM [Concomitant]
     Active Substance: ESOMEPRAZOLE MAGNESIUM
  18. LEXAPRO [Concomitant]
     Active Substance: ESCITALOPRAM OXALATE
  19. MIRALAX [Concomitant]
     Active Substance: POLYETHYLENE GLYCOL 3350
  20. VITAMIN D3 [Concomitant]
     Active Substance: CHOLECALCIFEROL
  21. ASCORBIC ACID [Concomitant]
     Active Substance: ASCORBIC ACID
  22. PROSTATE COMPLEX [Concomitant]
  23. DIGESTIVE ENZYMES V COMPLEX [Concomitant]
  24. ALLEGRA [Concomitant]
     Active Substance: FEXOFENADINE HYDROCHLORIDE
  25. CHONDROITIN SULFATE (BOVINE)\GLUCOSAMINE HYDROCHLORIDE [Concomitant]
     Active Substance: CHONDROITIN SULFATE (BOVINE)\GLUCOSAMINE HYDROCHLORIDE
  26. COQ [Concomitant]
  27. TYLENOL [Concomitant]
     Active Substance: ACETAMINOPHEN
  28. Omega 3 + vitamin d [Concomitant]
  29. PROBIOTIC [BIFIDOBACTERIUM INFANTIS;LACTOBACILLUS ACIDOPHILUS] [Concomitant]
  30. REGLAN [Concomitant]
     Active Substance: METOCLOPRAMIDE HYDROCHLORIDE
  31. PROVIGIL [Concomitant]
     Active Substance: MODAFINIL
  32. MUCINEX [Concomitant]
     Active Substance: GUAIFENESIN

REACTIONS (15)
  - Death [Fatal]
  - Pancreatic carcinoma [Unknown]
  - Infusion site haemorrhage [Unknown]
  - Therapy interrupted [Unknown]
  - Infusion related reaction [Unknown]
  - Oral infection [Unknown]
  - Fatigue [Unknown]
  - Headache [Unknown]
  - Infusion site swelling [Unknown]
  - Cough [Unknown]
  - Migraine [Unknown]
  - Blood pressure decreased [Unknown]
  - Nausea [Unknown]
  - Decreased appetite [Unknown]
  - Discomfort [Unknown]

NARRATIVE: CASE EVENT DATE: 20211108
